FAERS Safety Report 9813714 (Version 2)
Quarter: 2014Q1

REPORT INFORMATION
  Report Type: Report from Study
  Country: US (occurrence: US)
  Receive Date: 20140113
  Receipt Date: 20140304
  Transmission Date: 20141002
  Serious: Yes (Other)
  Sender: FDA-Public Use
  Company Number: US-BRISTOL-MYERS SQUIBB COMPANY-19980325

PATIENT
  Age: 56 Year
  Sex: Female
  Weight: 105.21 kg

DRUGS (6)
  1. ORENCIA [Suspect]
     Indication: RHEUMATOID ARTHRITIS
     Dosage: LAST INFUSION WAS ON 30DEC2013
     Route: 042
  2. IBUPROFEN [Suspect]
  3. ARAVA [Suspect]
     Indication: RHEUMATOID ARTHRITIS
     Dosage: INTRPTD ON 17MAR11?RESTRTD ON 28APR11
     Route: 048
     Dates: start: 20110217
  4. ARAVA [Suspect]
     Indication: ARTHRALGIA
     Dosage: INTRPTD ON 17MAR11?RESTRTD ON 28APR11
     Route: 048
     Dates: start: 20110217
  5. DUEXIS [Suspect]
     Indication: ARTHRALGIA
     Route: 048
     Dates: start: 20110217
  6. DUEXIS [Suspect]
     Indication: RHEUMATOID ARTHRITIS
     Route: 048
     Dates: start: 20110217

REACTIONS (3)
  - Anaemia [Unknown]
  - Gastrointestinal haemorrhage [Unknown]
  - Weight decreased [Unknown]
